FAERS Safety Report 7441689-2 (Version None)
Quarter: 2011Q2

REPORT INFORMATION
  Report Type: 
  Country: None (occurrence: None)
  Receive Date: 20110428
  Receipt Date: 20100910
  Transmission Date: 20111010
  Serious: No
  Sender: FDA-Public Use
  Company Number: A0880984A

PATIENT
  Sex: Female

DRUGS (1)
  1. NARATRIPTAN [Suspect]
     Indication: MIGRAINE
     Route: 048

REACTIONS (2)
  - DRUG INEFFECTIVE [None]
  - ACTIVITIES OF DAILY LIVING IMPAIRED [None]
